FAERS Safety Report 12707725 (Version 1)
Quarter: 2016Q3

REPORT INFORMATION
  Report Type: Spontaneous
  Country: US (occurrence: US)
  Receive Date: 20160901
  Receipt Date: 20160901
  Transmission Date: 20161109
  Serious: No
  Sender: FDA-Public Use
  Company Number: US-BAYER-2016-170521

PATIENT
  Age: 83 Year
  Sex: Male
  Weight: 68.27 kg

DRUGS (2)
  1. BENEFIBER [Concomitant]
     Active Substance: STARCH, WHEAT
     Dosage: UNK, QD
  2. MIRALAX [Suspect]
     Active Substance: POLYETHYLENE GLYCOL 3350
     Indication: BOWEL MOVEMENT IRREGULARITY
     Dosage: 1 DF, QD
     Route: 048

REACTIONS (3)
  - Wrong technique in product usage process [None]
  - Product use issue [None]
  - Product quality issue [None]

NARRATIVE: CASE EVENT DATE: 2015
